FAERS Safety Report 11205898 (Version 1)
Quarter: 2015Q2

REPORT INFORMATION
  Report Type: Spontaneous
  Country: CZ (occurrence: CZ)
  Receive Date: 20150622
  Receipt Date: 20150622
  Transmission Date: 20150821
  Serious: Yes (Death, Other)
  Sender: FDA-Public Use
  Company Number: CZ-JNJFOC-20150615010

PATIENT
  Age: 37 Year
  Sex: Male

DRUGS (2)
  1. PARACETAMOL [Suspect]
     Active Substance: ACETAMINOPHEN
     Route: 048
  2. PARACETAMOL [Suspect]
     Active Substance: ACETAMINOPHEN
     Indication: PRODUCT USED FOR UNKNOWN INDICATION
     Route: 048

REACTIONS (7)
  - Overdose [Fatal]
  - Suicide attempt [Fatal]
  - Coma [Fatal]
  - Rhabdomyolysis [Fatal]
  - Hepatic failure [Fatal]
  - Renal failure [Fatal]
  - Metabolic acidosis [Fatal]
